FAERS Safety Report 4804676-6 (Version None)
Quarter: 2005Q4

REPORT INFORMATION
  Report Type: 
  Country: None (occurrence: None)
  Receive Date: 20051014
  Receipt Date: 20051010
  Transmission Date: 20060501
  Serious: Yes (Other)
  Sender: FDA-Public Use
  Company Number: 200511434BWH

PATIENT
  Age: 64 Year
  Sex: Male

DRUGS (4)
  1. LEVITRA [Suspect]
     Indication: ERECTILE DYSFUNCTION
     Dosage: 10 MG, Q2WK, ORAL
     Route: 048
     Dates: start: 20050501, end: 20050715
  2. PRAVACHOL [Concomitant]
  3. CORGARD [Concomitant]
  4. ZYRTEC [Concomitant]

REACTIONS (13)
  - ANOREXIA [None]
  - CHILLS [None]
  - CONJUNCTIVITIS [None]
  - DIZZINESS [None]
  - DYSPEPSIA [None]
  - EYE INFECTION BACTERIAL [None]
  - FATIGUE [None]
  - HEADACHE [None]
  - HYPERAESTHESIA [None]
  - NASAL CONGESTION [None]
  - PHARYNGOLARYNGEAL PAIN [None]
  - PNEUMONIA [None]
  - RHINITIS [None]
